FAERS Safety Report 5045777-X (Version None)
Quarter: 2006Q3

REPORT INFORMATION
  Report Type: 
  Country: None (occurrence: None)
  Receive Date: 20060710
  Receipt Date: 20060628
  Transmission Date: 20061208
  Serious: Yes (Hospitalization, Other)
  Sender: FDA-Public Use
  Company Number: US-AMGEN-US184834

PATIENT
  Sex: Male

DRUGS (1)
  1. ENBREL [Suspect]
     Indication: PSORIASIS

REACTIONS (5)
  - ERYTHEMA [None]
  - MASS [None]
  - OEDEMA PERIPHERAL [None]
  - PYREXIA [None]
  - TOOTH ABSCESS [None]
